FAERS Safety Report 9493222 (Version 4)
Quarter: 2014Q2

REPORT INFORMATION
  Report Type: Report from Study
  Country: JP (occurrence: JP)
  Receive Date: 20130902
  Receipt Date: 20140524
  Transmission Date: 20141212
  Serious: Yes (Hospitalization, Other)
  Sender: FDA-Public Use
  Company Number: PHHY2013JP094681

PATIENT
  Age: 42 Year
  Sex: Male
  Weight: 52 kg

DRUGS (41)
  1. LEPONEX / CLOZARIL [Suspect]
     Indication: SCHIZOPHRENIA
     Dosage: 12.5 MG, DAILY
     Route: 048
     Dates: start: 20130515, end: 20130515
  2. LEPONEX / CLOZARIL [Suspect]
     Indication: SCHIZOPHRENIA, UNDIFFERENTIATED TYPE
     Dosage: 25 MG, DAILY
     Route: 048
     Dates: start: 20130516, end: 20130518
  3. LEPONEX / CLOZARIL [Suspect]
     Dosage: 20 MG, DAILY
     Route: 048
     Dates: start: 20130519, end: 20130521
  4. LEPONEX / CLOZARIL [Suspect]
     Dosage: 75 MG, DAILY
     Route: 048
     Dates: start: 20130522, end: 20130523
  5. LEPONEX / CLOZARIL [Suspect]
     Dosage: 100 MG, DAILY
     Route: 048
     Dates: start: 20130524, end: 20130525
  6. LEPONEX / CLOZARIL [Suspect]
     Dosage: 125 MG, DAILY
     Route: 048
     Dates: start: 20130526, end: 20130606
  7. LEPONEX / CLOZARIL [Suspect]
     Dosage: 150 MG, DAILY
     Route: 048
     Dates: start: 20130607, end: 20130611
  8. LEPONEX / CLOZARIL [Suspect]
     Dosage: 175 MG, DAILY
     Route: 048
     Dates: start: 20130612, end: 20130618
  9. LEPONEX / CLOZARIL [Suspect]
     Dosage: 200 MG, DAILY
     Route: 048
     Dates: start: 20130619, end: 20130625
  10. LEPONEX / CLOZARIL [Suspect]
     Dosage: 250 MG, DAILY
     Route: 048
     Dates: start: 20130626, end: 20130702
  11. LEPONEX / CLOZARIL [Suspect]
     Dosage: 300 MG, DAILY
     Route: 048
     Dates: start: 20130703, end: 20130709
  12. LEPONEX / CLOZARIL [Suspect]
     Dosage: 350 MG, DAILY
     Route: 048
     Dates: start: 20130710, end: 20130716
  13. LEPONEX / CLOZARIL [Suspect]
     Dosage: 400 MG, DAILY
     Route: 048
     Dates: start: 20130717, end: 20130820
  14. LEPONEX / CLOZARIL [Suspect]
     Dosage: 500 MG, DAILY
     Route: 048
     Dates: start: 20130820, end: 20130826
  15. LEPONEX / CLOZARIL [Suspect]
     Dosage: 300 MG, DAILY
     Route: 048
     Dates: start: 20130827, end: 20130903
  16. LEPONEX / CLOZARIL [Suspect]
     Dosage: 75 MG, DAILY
     Route: 048
     Dates: start: 20130911, end: 20130912
  17. LEPONEX / CLOZARIL [Suspect]
     Dosage: 100 MG, DAILY
     Route: 048
     Dates: start: 20130913, end: 20130914
  18. LEPONEX / CLOZARIL [Suspect]
     Dosage: 125 MG, DAILY
     Route: 048
     Dates: start: 20130915, end: 20130917
  19. LEPONEX / CLOZARIL [Suspect]
     Dosage: 150 MG, DAILY
     Route: 048
     Dates: start: 20130918, end: 20130920
  20. LEPONEX / CLOZARIL [Suspect]
     Dosage: 175 MG, DAILY
     Route: 048
     Dates: start: 20130921, end: 20130923
  21. LEPONEX / CLOZARIL [Suspect]
     Dosage: 200 MG, DAILY
     Route: 048
     Dates: start: 20130924, end: 20130927
  22. LEPONEX / CLOZARIL [Suspect]
     Dosage: 250 MG, DAILY
     Route: 048
     Dates: start: 20130928, end: 20131001
  23. LEPONEX / CLOZARIL [Suspect]
     Dosage: 300 MG, DAILY
     Route: 048
     Dates: start: 20131002
  24. RISPERIDONE [Concomitant]
     Dosage: 3 MG, UNK
     Route: 048
     Dates: start: 20130515
  25. RISPERIDONE [Concomitant]
     Dosage: 1.5 MG, UNK
     Route: 048
     Dates: end: 20130526
  26. CHLORPROMAZINE HYDROCHLORIDE [Concomitant]
     Dosage: 25 MG, UNK
     Route: 048
     Dates: start: 20130515
  27. CHLORPROMAZINE HYDROCHLORIDE [Concomitant]
     Dosage: 12.5 MG, UNK
     Route: 048
     Dates: end: 20130602
  28. BENZALIN [Concomitant]
     Indication: SCHIZOPHRENIA, UNDIFFERENTIATED TYPE
     Dosage: 10 MG, UNK
     Route: 048
  29. BENZALIN [Concomitant]
     Dosage: 5 MG, UNK
     Route: 048
     Dates: end: 20130616
  30. BROTIZOLAM [Concomitant]
     Indication: SCHIZOPHRENIA, UNDIFFERENTIATED TYPE
     Dosage: 0.25 MG, UNK
     Route: 048
     Dates: start: 20130617, end: 20131114
  31. SENNOSIDE [Concomitant]
     Dosage: 36 MG, UNK
     Route: 048
  32. SENNOSIDE [Concomitant]
     Dosage: 48 MG, UNK
     Route: 048
  33. MAGNESIUM OXIDE [Concomitant]
     Dosage: 1980 MG, UNK
     Route: 048
  34. MAGNESIUM OXIDE [Concomitant]
     Dosage: 3000 MG, UNK
     Route: 048
  35. WYPAX [Concomitant]
     Indication: SCHIZOPHRENIA, UNDIFFERENTIATED TYPE
     Dosage: 1.5 MG, UNK
     Route: 048
  36. WYPAX [Concomitant]
     Dosage: 1 MG, UNK
     Route: 048
     Dates: end: 20130825
  37. LITHIUM CARBONATE [Concomitant]
     Indication: SCHIZOPHRENIA, UNDIFFERENTIATED TYPE
     Dosage: 300 MG, UNK
     Route: 048
     Dates: start: 20130423
  38. OMEPRAZOLE [Concomitant]
     Dosage: 20 MG, UNK
     Route: 048
  39. LEUCON [Concomitant]
     Indication: PROPHYLAXIS
     Dosage: 30 MG, UNK
     Route: 048
     Dates: start: 20130503
  40. NEUROVITAN [Concomitant]
     Dosage: 3 DF, UNK
     Route: 048
     Dates: start: 20130912
  41. FERROMIA [Concomitant]
     Dosage: 100 MG, UNK
     Route: 048
     Dates: start: 20130906

REACTIONS (19)
  - Water intoxication [Unknown]
  - Polydipsia [Unknown]
  - Multi-organ failure [Recovered/Resolved]
  - Vitamin B1 deficiency [Recovered/Resolved]
  - Cardiac failure [Recovered/Resolved]
  - Renal failure [Recovered/Resolved]
  - Palpitations [Recovering/Resolving]
  - Salivary hypersecretion [Not Recovered/Not Resolved]
  - Tachycardia [Not Recovered/Not Resolved]
  - Blood creatinine increased [Unknown]
  - Blood urea increased [Unknown]
  - Oliguria [Recovered/Resolved]
  - Generalised oedema [Recovered/Resolved]
  - Altered state of consciousness [Recovered/Resolved]
  - Aspartate aminotransferase increased [Unknown]
  - Alanine aminotransferase increased [Unknown]
  - Hyponatraemia [Recovered/Resolved]
  - Anaemia [Unknown]
  - Red blood cell count decreased [Recovered/Resolved]
